FAERS Safety Report 8811198 (Version 1)
Quarter: 2012Q4

REPORT INFORMATION
  Report Type: Spontaneous
  Country: US (occurrence: None)
  Receive Date: 20120925
  Receipt Date: 20120925
  Transmission Date: 20130627
  Serious: Yes (Life-Threatening, Other)
  Sender: FDA-Public Use
  Company Number: None

PATIENT
  Age: 50 Year
  Sex: Male
  Weight: 95.26 kg

DRUGS (1)
  1. CHANTIX [Suspect]
     Indication: CESSATION OF SMOKING
     Dosage: 1x per day
     Route: 048
     Dates: start: 20120918, end: 20120921

REACTIONS (12)
  - Depression [None]
  - Mood altered [None]
  - Personality change [None]
  - Lethargy [None]
  - Libido decreased [None]
  - Anhedonia [None]
  - Anger [None]
  - Food craving [None]
  - Agitation [None]
  - Anxiety [None]
  - Nervousness [None]
  - Emotional disorder [None]
